FAERS Safety Report 21670564 (Version 1)
Quarter: 2022Q4

REPORT INFORMATION
  Report Type: Report from Study
  Country: CA (occurrence: CA)
  Receive Date: 20221201
  Receipt Date: 20221201
  Transmission Date: 20230112
  Serious: Yes (Other)
  Sender: FDA-Public Use
  Company Number: CA-JNJFOC-20221159775

PATIENT
  Sex: Female

DRUGS (1)
  1. REMICADE [Suspect]
     Active Substance: INFLIXIMAB
     Indication: Crohn^s disease
     Dosage: ON 25-NOV-2022, PATIENT RECEIVED 63RD INFLIXIMAB RECOMBINANT INFUSION OF 300 MG AND PARTIAL HARVEY-B
     Route: 041
     Dates: start: 20130816

REACTIONS (3)
  - Crohn^s disease [Recovering/Resolving]
  - Tachycardia [Unknown]
  - COVID-19 [Recovering/Resolving]
